FAERS Safety Report 5266637-5 (Version None)
Quarter: 2007Q1

REPORT INFORMATION
  Report Type: 
  Country: None (occurrence: None)
  Receive Date: 20070312
  Receipt Date: 20070223
  Transmission Date: 20070707
  Serious: Yes (Other)
  Sender: FDA-Public Use
  Company Number: 235661

PATIENT
  Age: 44 Year
  Sex: Female

DRUGS (2)
  1. XOLAIR [Suspect]
     Indication: ASTHMA
     Dosage: 300 MG, SINGLE, SUBCUTANEOUS
     Route: 058
     Dates: start: 20070117
  2. BRONCHODILATORS (BRONCHODILATOR NOS) [Concomitant]

REACTIONS (4)
  - ANGIOEDEMA [None]
  - CHEST DISCOMFORT [None]
  - PHARYNGEAL OEDEMA [None]
  - PRURITUS [None]
